APPROVED DRUG PRODUCT: CYPROHEPTADINE HYDROCHLORIDE
Active Ingredient: CYPROHEPTADINE HYDROCHLORIDE
Strength: 4MG
Dosage Form/Route: TABLET;ORAL
Application: A040644 | Product #001 | TE Code: AA
Applicant: KENTON CHEMICALS AND PHARMACEUTICALS CORP
Approved: May 30, 2006 | RLD: No | RS: No | Type: RX